FAERS Safety Report 12805614 (Version 1)
Quarter: 2016Q4

REPORT INFORMATION
  Report Type: Spontaneous
  Country: US (occurrence: US)
  Receive Date: 20161002
  Receipt Date: 20161002
  Transmission Date: 20170207
  Serious: Yes (Other)
  Sender: FDA-Public Use
  Company Number: None

PATIENT
  Age: 28 Year
  Sex: Female
  Weight: 54.9 kg

DRUGS (6)
  1. BERRY JUICE [Concomitant]
  2. MICROGESTIN [Concomitant]
     Active Substance: ETHINYL ESTRADIOL\NORETHINDRONE ACETATE
  3. CLINDAMYCIN HCL [Suspect]
     Active Substance: CLINDAMYCIN HYDROCHLORIDE
     Indication: PHARYNGITIS STREPTOCOCCAL
     Dosage: ?          QUANTITY:2 CAPSULE(S);?
     Route: 048
     Dates: start: 20160912, end: 20160917
  4. VITAMIN C [Concomitant]
     Active Substance: ASCORBIC ACID
  5. ECHINACIA [Concomitant]
  6. TOPICAL OINTMENTS [Concomitant]

REACTIONS (5)
  - Pharyngeal oedema [None]
  - Psoriasis [None]
  - Malaise [None]
  - Pain [None]
  - Drug ineffective [None]

NARRATIVE: CASE EVENT DATE: 20160924
